FAERS Safety Report 5309392-2 (Version None)
Quarter: 2007Q2

REPORT INFORMATION
  Report Type: 
  Country: None (occurrence: None)
  Receive Date: 20070424
  Receipt Date: 20070424
  Transmission Date: 20071010
  Serious: Yes (Hospitalization)
  Sender: FDA-Public Use
  Company Number: None

PATIENT
  Age: 68 Year
  Sex: Male
  Weight: 95.8 kg

DRUGS (2)
  1. CLOPIDOGREL [Suspect]
     Indication: THROMBOSIS
     Dosage: 75 MG QD PO
     Route: 048
  2. IBUPROFEN [Suspect]
     Indication: PAIN
     Dosage: 600 MG TID PO
     Route: 048
     Dates: start: 20070218, end: 20070402

REACTIONS (3)
  - GASTROINTESTINAL HAEMORRHAGE [None]
  - POLYP [None]
  - RECTAL HAEMORRHAGE [None]
